FAERS Safety Report 9247426 (Version 1)
Quarter: 2013Q2

REPORT INFORMATION
  Report Type: Report from Study
  Country: US (occurrence: US)
  Receive Date: 20130423
  Receipt Date: 20130423
  Transmission Date: 20140414
  Serious: Yes (Other)
  Sender: FDA-Public Use
  Company Number: US-JNJFOC-20130409087

PATIENT
  Age: 19 Year
  Sex: Male
  Weight: 111 kg

DRUGS (10)
  1. REMICADE [Suspect]
     Indication: HIDRADENITIS
     Route: 042
     Dates: start: 20100622
  2. REMICADE [Suspect]
     Indication: HIDRADENITIS
     Route: 042
     Dates: end: 20121220
  3. REMICADE [Suspect]
     Indication: HIDRADENITIS
     Route: 042
  4. REMICADE [Suspect]
     Indication: HIDRADENITIS
     Route: 042
     Dates: start: 20121220
  5. ATENOLOL [Concomitant]
     Indication: HYPERTENSION
     Route: 048
     Dates: start: 20120728
  6. PULMICORT FLEXHALER [Concomitant]
     Indication: RESPIRATORY DISORDER
     Dosage: 2 PUFFS TWICE DAILY
     Route: 055
     Dates: start: 20110711
  7. CLINDAMYCIN 1% [Concomitant]
     Indication: SKIN DISORDER
     Route: 061
  8. ATROVENT [Concomitant]
     Indication: RESPIRATORY DISORDER
     Route: 055
     Dates: start: 20111116
  9. SINGULAIR [Concomitant]
     Indication: RESPIRATORY DISORDER
     Route: 048
     Dates: start: 20111116
  10. TOPAMAX [Concomitant]
     Route: 048
     Dates: start: 20130206

REACTIONS (3)
  - Weight increased [Not Recovered/Not Resolved]
  - Blood pressure inadequately controlled [Not Recovered/Not Resolved]
  - Off label use [Not Recovered/Not Resolved]
